FAERS Safety Report 5413705-0 (Version None)
Quarter: 2007Q3

REPORT INFORMATION
  Report Type: 
  Country: None (occurrence: None)
  Receive Date: 20070814
  Receipt Date: 20070808
  Transmission Date: 20080115
  Serious: Yes (Disabling)
  Sender: FDA-Public Use
  Company Number: B0427595A

PATIENT
  Age: 43 Year
  Sex: Female

DRUGS (4)
  1. EPIVIR [Suspect]
     Indication: ACQUIRED IMMUNODEFICIENCY SYNDROME
     Dosage: 300MG TWICE PER DAY
     Route: 048
     Dates: start: 20000115
  2. VIDEX [Suspect]
     Indication: ACQUIRED IMMUNODEFICIENCY SYNDROME
     Route: 048
     Dates: start: 20010915, end: 20060516
  3. IRBESARTAN [Suspect]
     Route: 048
     Dates: start: 20040615, end: 20060315
  4. VIRAMUNE [Suspect]
     Indication: ACQUIRED IMMUNODEFICIENCY SYNDROME
     Route: 048
     Dates: start: 20000115

REACTIONS (10)
  - ALANINE AMINOTRANSFERASE INCREASED [None]
  - ASPARTATE AMINOTRANSFERASE INCREASED [None]
  - BLOOD ALKALINE PHOSPHATASE INCREASED [None]
  - CHOLANGITIS [None]
  - CHOLESTASIS [None]
  - EPIGASTRIC DISCOMFORT [None]
  - GASTRITIS [None]
  - HEPATIC FIBROSIS [None]
  - PORTAL HYPERTENSION [None]
  - VARICES OESOPHAGEAL [None]
